FAERS Safety Report 4529967-8 (Version None)
Quarter: 2004Q4

REPORT INFORMATION
  Report Type: 
  Country: None (occurrence: None)
  Receive Date: 20041214
  Receipt Date: 20041201
  Transmission Date: 20050328
  Serious: No
  Sender: FDA-Public Use
  Company Number: USA-2004-0017686

PATIENT
  Age: 45 Year
  Sex: Female

DRUGS (1)
  1. OXYCONTIN [Suspect]

REACTIONS (3)
  - DRUG WITHDRAWAL SYNDROME [None]
  - PAIN [None]
  - TREATMENT NONCOMPLIANCE [None]
